FAERS Safety Report 9366354 (Version 1)
Quarter: 2013Q2

REPORT INFORMATION
  Report Type: Spontaneous
  Country: BR (occurrence: BR)
  Receive Date: 20130625
  Receipt Date: 20130625
  Transmission Date: 20140414
  Serious: Yes (Death)
  Sender: FDA-Public Use
  Company Number: BR-JNJFOC-20130610964

PATIENT
  Sex: 0

DRUGS (3)
  1. DOXORUBICIN HYDROCHLORIDE [Suspect]
     Indication: BREAST CANCER
     Route: 042
  2. DOCETAXEL [Suspect]
     Indication: BREAST CANCER
     Dosage: AT LEAST ONE HOUR INFUSION
     Route: 042
  3. FILGRASTIM [Suspect]
     Indication: BREAST CANCER
     Dosage: IN FIRST CYCLE ONLY FOR 5 DAYS AT LEAST AND A MAXIMUM OF 14 DAYS. BASED ON ACTUALBODY WEIGHT
     Route: 058

REACTIONS (1)
  - Ischaemic stroke [Fatal]
